FAERS Safety Report 7585855-4 (Version None)
Quarter: 2011Q2

REPORT INFORMATION
  Report Type: 
  Country: None (occurrence: None)
  Receive Date: 20110603
  Receipt Date: 20110216
  Transmission Date: 20111010
  Serious: No
  Sender: FDA-Public Use
  Company Number: 201101044

PATIENT
  Age: 66 Year
  Sex: Male

DRUGS (4)
  1. MARCAINE [Suspect]
  2. MICARDIS [Concomitant]
  3. XIAFLEX [Suspect]
     Indication: DUPUYTREN'S CONTRACTURE
     Dosage: 0.58 MG, 1 IN 1 D, INTRALESIONAL
     Route: 026
     Dates: start: 20110112, end: 20110112
  4. LIDOCAINE [Suspect]

REACTIONS (2)
  - HAEMATOMA [None]
  - LACERATION [None]
